FAERS Safety Report 5776011-0 (Version None)
Quarter: 2008Q2

REPORT INFORMATION
  Report Type: 
  Country: None (occurrence: None)
  Receive Date: 20080613
  Receipt Date: 20080606
  Transmission Date: 20081010
  Serious: Yes (Death, Life-Threatening, Hospitalization)
  Sender: FDA-Public Use
  Company Number: 08H-163-0314388-00

PATIENT
  Age: 55 Year
  Sex: Female
  Weight: 54 kg

DRUGS (2)
  1. VANCOMYCIN HYDROCHLORIDE [Suspect]
     Indication: CATHETER RELATED INFECTION
     Dosage: 500 MG, CONTINUOUS, INTRAVENOUS, 1 GM, CONTINUOUS, INTRAVENOUS
     Route: 042
     Dates: start: 20080530, end: 20080530
  2. VANCOMYCIN HYDROCHLORIDE [Suspect]
     Indication: CATHETER RELATED INFECTION
     Dosage: 500 MG, CONTINUOUS, INTRAVENOUS, 1 GM, CONTINUOUS, INTRAVENOUS
     Route: 042
     Dates: start: 20080530, end: 20080530

REACTIONS (6)
  - CARDIAC ARREST [None]
  - CYANOSIS [None]
  - HAEMORRHAGIC STROKE [None]
  - PULSE ABSENT [None]
  - UNRESPONSIVE TO STIMULI [None]
  - VENTRICULAR TACHYCARDIA [None]
